FAERS Safety Report 15500463 (Version 1)
Quarter: 2018Q4

REPORT INFORMATION
  Report Type: Spontaneous
  Country: US (occurrence: US)
  Receive Date: 20181015
  Receipt Date: 20181015
  Transmission Date: 20190205
  Serious: Yes (Other)
  Sender: FDA-Public Use
  Company Number: None

PATIENT
  Age: 62 Year
  Sex: Male
  Weight: 85.05 kg

DRUGS (1)
  1. GABAPENTIN 100MG CAPSULES [Suspect]
     Active Substance: GABAPENTIN
     Indication: ANXIETY
     Dosage: ?          QUANTITY:1 CAPSULE(S);?
     Route: 048
     Dates: start: 20180927, end: 20181007

REACTIONS (2)
  - Drug ineffective for unapproved indication [None]
  - Hallucination [None]

NARRATIVE: CASE EVENT DATE: 20181013
